FAERS Safety Report 7185991-0 (Version None)
Quarter: 2010Q4

REPORT INFORMATION
  Report Type: 
  Country: None (occurrence: None)
  Receive Date: 20101222
  Receipt Date: 20100612
  Transmission Date: 20110411
  Serious: No
  Sender: FDA-Public Use
  Company Number: US-AMGEN-KDL418203

PATIENT

DRUGS (2)
  1. ENBREL [Suspect]
     Indication: RHEUMATOID ARTHRITIS
     Dosage: 50 MG, QWK
     Route: 058
     Dates: start: 20100604
  2. METHOTREXATE [Concomitant]
     Dosage: 1.75 MG, 2 TIMES/WK

REACTIONS (3)
  - EYE IRRITATION [None]
  - FATIGUE [None]
  - HEADACHE [None]
